FAERS Safety Report 14821371 (Version 1)
Quarter: 2018Q2

REPORT INFORMATION
  Report Type: Report from Study
  Country: US (occurrence: US)
  Receive Date: 20180427
  Receipt Date: 20180427
  Transmission Date: 20180711
  Serious: Yes (Other)
  Sender: FDA-Public Use
  Company Number: US-JAZZ-2018-US-005497

PATIENT
  Sex: Male

DRUGS (17)
  1. DIVALPROEX SODIUM. [Concomitant]
     Active Substance: DIVALPROEX SODIUM
  2. PROPRANOLOL [Concomitant]
     Active Substance: PROPRANOLOL HYDROCHLORIDE
  3. XYREM [Suspect]
     Active Substance: SODIUM OXYBATE
     Dosage: 4.5 G, BID
     Route: 048
  4. DEXAMFETAMINE [Concomitant]
     Active Substance: DEXTROAMPHETAMINE
  5. ADDERALL [Concomitant]
     Active Substance: AMPHETAMINE ASPARTATE\AMPHETAMINE SULFATE\DEXTROAMPHETAMINE SACCHARATE\DEXTROAMPHETAMINE SULFATE
  6. XYREM [Suspect]
     Active Substance: SODIUM OXYBATE
     Indication: CATAPLEXY
     Dosage: DOSE ADJUSTMENT
     Route: 048
     Dates: start: 201711, end: 201802
  7. REGULOID [Concomitant]
     Active Substance: PSYLLIUM HUSK
  8. NORCO [Concomitant]
     Active Substance: ACETAMINOPHEN\HYDROCODONE BITARTRATE
  9. MODAFINIL. [Concomitant]
     Active Substance: MODAFINIL
  10. SERTRALINE HCL [Concomitant]
     Active Substance: SERTRALINE HYDROCHLORIDE
  11. ABILIFY [Concomitant]
     Active Substance: ARIPIPRAZOLE
  12. XYREM [Suspect]
     Active Substance: SODIUM OXYBATE
     Indication: NARCOLEPSY
     Dosage: 2.25 G, BID
     Route: 048
     Dates: start: 201710, end: 201711
  13. AMITRIPTYLINE HCL [Concomitant]
     Active Substance: AMITRIPTYLINE
  14. VENTOLIN HFA [Concomitant]
     Active Substance: ALBUTEROL SULFATE
  15. XYREM [Suspect]
     Active Substance: SODIUM OXYBATE
     Dosage: 3.5 G, BID
     Route: 048
     Dates: start: 201802
  16. LISINOPRIL. [Concomitant]
     Active Substance: LISINOPRIL
  17. XANAX [Concomitant]
     Active Substance: ALPRAZOLAM

REACTIONS (9)
  - Depression [Unknown]
  - Drug intolerance [Unknown]
  - Anger [Unknown]
  - Hyperhidrosis [Unknown]
  - Agitation [Unknown]
  - Vision blurred [Unknown]
  - Bipolar disorder [Unknown]
  - Disability [Unknown]
  - Anxiety [Unknown]
